FAERS Safety Report 5361628-8 (Version None)
Quarter: 2007Q2

REPORT INFORMATION
  Report Type: 
  Country: None (occurrence: None)
  Receive Date: 20070615
  Receipt Date: 20070601
  Transmission Date: 20071010
  Serious: Yes (Hospitalization)
  Sender: FDA-Public Use
  Company Number: 2007BI010195

PATIENT
  Age: 68 Year
  Sex: Female

DRUGS (13)
  1. NATALIZUMAB [Suspect]
     Indication: MULTIPLE SCLEROSIS
     Dosage: IV
     Route: 042
     Dates: start: 20070101, end: 20070101
  2. TORSEMIDE [Concomitant]
  3. LISINOPRIL [Concomitant]
  4. TOPROL-XL [Concomitant]
  5. FOSAMAX [Concomitant]
  6. ASPIRIN [Concomitant]
  7. PROVIGIL [Concomitant]
  8. VITAMIN D [Concomitant]
  9. B6 [Concomitant]
  10. DEMADEX [Concomitant]
  11. ATIVAN [Concomitant]
  12. NORCO [Concomitant]
  13. SUPPLEMENTS [Concomitant]

REACTIONS (44)
  - ACTIVATED PARTIAL THROMBOPLASTIN TIME PROLONGED [None]
  - ALANINE AMINOTRANSFERASE INCREASED [None]
  - APLASTIC ANAEMIA [None]
  - ASPARTATE AMINOTRANSFERASE INCREASED [None]
  - ATELECTASIS [None]
  - BACTERIAL INFECTION [None]
  - BALANCE DISORDER [None]
  - BLOOD ALBUMIN DECREASED [None]
  - BLOOD ALKALINE PHOSPHATASE INCREASED [None]
  - BLOOD CALCIUM INCREASED [None]
  - BLOOD CREATINE INCREASED [None]
  - BLOOD GLUCOSE INCREASED [None]
  - BLOOD LACTATE DEHYDROGENASE INCREASED [None]
  - BLOOD UREA INCREASED [None]
  - BONE MARROW FAILURE [None]
  - CANDIDIASIS [None]
  - CARDIAC FAILURE CONGESTIVE [None]
  - CARDIOMEGALY [None]
  - CEREBELLAR SYNDROME [None]
  - COAGULATION FACTOR XI LEVEL DECREASED [None]
  - CONFUSIONAL STATE [None]
  - COOMBS NEGATIVE HAEMOLYTIC ANAEMIA [None]
  - COOMBS POSITIVE HAEMOLYTIC ANAEMIA [None]
  - ESCHERICHIA URINARY TRACT INFECTION [None]
  - FACTOR XI DEFICIENCY [None]
  - FALL [None]
  - GAIT DISTURBANCE [None]
  - HAEMATOCHEZIA [None]
  - HAEMOLYSIS [None]
  - HERPES SIMPLEX [None]
  - HYPOVOLAEMIA [None]
  - INTERNATIONAL NORMALISED RATIO INCREASED [None]
  - INTERSTITIAL LUNG DISEASE [None]
  - MULTIPLE SCLEROSIS RELAPSE [None]
  - OSTEOPOROSIS [None]
  - PLEURAL EFFUSION [None]
  - PNEUMONIA [None]
  - PULMONARY OEDEMA [None]
  - RECTAL HAEMORRHAGE [None]
  - RESPIRATORY FAILURE [None]
  - SKIN LACERATION [None]
  - THROMBOTIC THROMBOCYTOPENIC PURPURA [None]
  - URINARY TRACT INFECTION [None]
  - URINE LEUKOCYTE ESTERASE POSITIVE [None]
